FAERS Safety Report 7772308-3 (Version None)
Quarter: 2011Q3

REPORT INFORMATION
  Report Type: 
  Country: None (occurrence: None)
  Receive Date: 20110922
  Receipt Date: 20100527
  Transmission Date: 20111222
  Serious: No
  Sender: FDA-Public Use
  Company Number: US-ASTRAZENECA-2010SE45256

PATIENT
  Age: 13917 Day
  Sex: Female
  Weight: 97.5 kg

DRUGS (25)
  1. TRAZODONE HYDROCHLORIDE [Concomitant]
     Dosage: 100 TO 200 MG
     Dates: start: 20031209
  2. EFFEXOR XR [Concomitant]
     Dosage: 75 TO 150 MG
     Dates: start: 20031021
  3. PROTONIX [Concomitant]
     Dates: start: 20031021
  4. LEXAPRO [Concomitant]
     Dosage: 10 TO 20 MG
     Dates: start: 20031124
  5. SONATA [Concomitant]
     Dates: start: 20031231
  6. OMEPRAZOLE [Concomitant]
     Dates: start: 20091110
  7. PREDNISONE [Concomitant]
     Dosage: 10 TO 20 MG
     Dates: start: 20031105
  8. ULTRACET [Concomitant]
     Dates: start: 20031114
  9. WELLBUTRIN [Concomitant]
     Dates: start: 20061203
  10. METFORMIN [Concomitant]
     Dosage: 500 MG TO 2000 MG
     Dates: start: 20091110
  11. FLEXERIL [Concomitant]
     Dates: start: 20061218
  12. CLONAZEPAM [Concomitant]
     Dates: start: 20031021
  13. VALIUM [Concomitant]
     Dates: start: 20061203
  14. SEROQUEL [Suspect]
     Dosage: 200 MG TO 600 MG
     Route: 048
     Dates: start: 20030919
  15. ACIPHEX [Concomitant]
     Dates: start: 20091110
  16. CARBAMAZEPINE [Concomitant]
     Dates: start: 20031014
  17. NEURONTIN [Concomitant]
     Dates: start: 20031209
  18. ACTOS [Concomitant]
     Dates: start: 20091110
  19. HYDROCODONE BITARTRATE AND ACETAMINOPHEN [Concomitant]
     Dosage: 7.5/ 650
     Dates: start: 20031027
  20. METOCLOPRAMIDE [Concomitant]
     Dates: start: 20031021
  21. LAMICTAL [Concomitant]
     Dosage: 25 TO 100 MG
     Dates: start: 20031021
  22. TEMAZEPAM [Concomitant]
     Dates: start: 20031022
  23. SKELAXIN [Concomitant]
     Dates: start: 20031027
  24. ABILIFY [Concomitant]
     Dates: start: 20031209
  25. NOVASAL [Concomitant]
     Dates: start: 20031223

REACTIONS (10)
  - GASTROOESOPHAGEAL REFLUX DISEASE [None]
  - DIABETES MELLITUS [None]
  - VOMITING [None]
  - HEADACHE [None]
  - FATIGUE [None]
  - BACK PAIN [None]
  - FIBROMYALGIA [None]
  - VISION BLURRED [None]
  - NAUSEA [None]
  - PAIN IN EXTREMITY [None]
